FAERS Safety Report 11857668 (Version 1)
Quarter: 2015Q4

REPORT INFORMATION
  Report Type: Spontaneous
  Country: US (occurrence: None)
  Receive Date: 20151221
  Receipt Date: 20151221
  Transmission Date: 20160305
  Serious: Yes (Life-Threatening, Hospitalization)
  Sender: FDA-Public Use
  Company Number: None

PATIENT
  Age: 74 Year
  Sex: Female
  Weight: 99 kg

DRUGS (1)
  1. AZACITIDINE. [Suspect]
     Active Substance: AZACITIDINE
     Indication: MYELODYSPLASTIC SYNDROME
     Route: 058
     Dates: start: 20151130, end: 20151204

REACTIONS (7)
  - Superinfection [None]
  - Fatigue [None]
  - Injection site erythema [None]
  - Blister [None]
  - Skin exfoliation [None]
  - Chills [None]
  - Ulcer [None]

NARRATIVE: CASE EVENT DATE: 20151215
